FAERS Safety Report 20150874 (Version 2)
Quarter: 2022Q2

REPORT INFORMATION
  Report Type: Spontaneous
  Country: DK (occurrence: DK)
  Receive Date: 20211206
  Receipt Date: 20220502
  Transmission Date: 20220721
  Serious: Yes (Hospitalization, Disabling)
  Sender: FDA-Public Use
  Company Number: DK-NOVARTISPH-NVSC2021DK278349

PATIENT
  Age: 28 Year
  Sex: Female

DRUGS (2)
  1. ENTRESTO [Suspect]
     Active Substance: SACUBITRIL\VALSARTAN
     Indication: Cardiac failure
     Dosage: 1 DOSAGE FORM, BID (24/24 MG)
     Route: 065
     Dates: start: 20211118, end: 20220218
  2. ENTRESTO [Suspect]
     Active Substance: SACUBITRIL\VALSARTAN
     Dosage: 1 DOSAGE FORM, BID (49/51 MG)
     Route: 065

REACTIONS (3)
  - Diarrhoea [Recovered/Resolved]
  - Cardiac failure [Unknown]
  - Hypotension [Unknown]

NARRATIVE: CASE EVENT DATE: 20211118
